FAERS Safety Report 12019300 (Version 1)
Quarter: 2016Q1

REPORT INFORMATION
  Report Type: Report from Study
  Country: US (occurrence: US)
  Receive Date: 20160206
  Receipt Date: 20160206
  Transmission Date: 20160526
  Serious: Yes (Hospitalization, Other)
  Sender: FDA-Public Use
  Company Number: US-ABBVIE-15K-163-1462160-00

PATIENT
  Age: 12 Year
  Sex: Female

DRUGS (2)
  1. HUMIRA [Suspect]
     Active Substance: ADALIMUMAB
     Route: 065
     Dates: start: 20150909
  2. HUMIRA [Suspect]
     Active Substance: ADALIMUMAB
     Indication: CROHN^S DISEASE
     Route: 065
     Dates: start: 20150317

REACTIONS (12)
  - Abdominal pain [Unknown]
  - Candida infection [Recovered/Resolved]
  - Incision site complication [Not Recovered/Not Resolved]
  - Local swelling [Unknown]
  - Pain [Unknown]
  - Incorrect dose administered [Unknown]
  - Purulent discharge [Unknown]
  - Injection site pain [Unknown]
  - Haemophilus infection [Recovered/Resolved]
  - Thyroglossal cyst infection [Recovered/Resolved]
  - Syringe issue [Unknown]
  - Injection site swelling [Unknown]

NARRATIVE: CASE EVENT DATE: 2015
